FAERS Safety Report 19448532 (Version 1)
Quarter: 2021Q2

REPORT INFORMATION
  Report Type: Spontaneous
  Country: US (occurrence: US)
  Receive Date: 20210622
  Receipt Date: 20210622
  Transmission Date: 20210717
  Serious: No
  Sender: FDA-Public Use
  Company Number: NVSC2021US132640

PATIENT
  Sex: Female

DRUGS (1)
  1. XIIDRA [Suspect]
     Active Substance: LIFITEGRAST
     Indication: PRODUCT USED FOR UNKNOWN INDICATION
     Dosage: 5 %, QD (ONCE A NIGHT)
     Route: 065

REACTIONS (6)
  - Ocular hyperaemia [Unknown]
  - Hyperhidrosis [Unknown]
  - Eye irritation [Unknown]
  - Eye pruritus [Unknown]
  - Vision blurred [Unknown]
  - Hot flush [Unknown]
